FAERS Safety Report 7785255-8 (Version None)
Quarter: 2011Q3

REPORT INFORMATION
  Report Type: 
  Country: None (occurrence: None)
  Receive Date: 20110929
  Receipt Date: 20110926
  Transmission Date: 20111222
  Serious: Yes (Death)
  Sender: FDA-Public Use
  Company Number: PHHY2011CA60887

PATIENT
  Sex: Male

DRUGS (6)
  1. SEROQUEL [Concomitant]
     Indication: SCHIZOPHRENIA
     Dosage: 275 MG, UNK
     Route: 048
  2. CLOZAPINE [Suspect]
     Dosage: 275 MG, UNK
     Route: 048
  3. CLOZAPINE [Suspect]
     Indication: SCHIZOPHRENIA
     Route: 048
     Dates: start: 20060824
  4. INSULIN [Concomitant]
  5. ASAPHEN [Concomitant]
  6. KEMADRIN [Concomitant]

REACTIONS (1)
  - MYOCARDIAL INFARCTION [None]
